FAERS Safety Report 8585626 (Version 4)
Quarter: 2014Q3

REPORT INFORMATION
  Report Type: Spontaneous
  Country: US (occurrence: US)
  Receive Date: 20120530
  Receipt Date: 20140703
  Transmission Date: 20150326
  Serious: Yes (Death, Hospitalization)
  Sender: FDA-Public Use
  Company Number: US-GLAXOSMITHKLINE-A0938265A

PATIENT
  Age: 65 Year
  Sex: Female
  Weight: 73.8 kg

DRUGS (2)
  1. WARFARIN [Concomitant]
     Active Substance: WARFARIN
  2. FLOLAN [Suspect]
     Active Substance: EPOPROSTENOL SODIUM
     Indication: PULMONARY ARTERIAL HYPERTENSION
     Dosage: 52NGKM CONTINUOUS
     Route: 042
     Dates: start: 20061113

REACTIONS (6)
  - Death [Fatal]
  - Central venous catheterisation [Unknown]
  - Arthritis [Not Recovered/Not Resolved]
  - Medical device complication [Unknown]
  - Arthritis [Not Recovered/Not Resolved]
  - Epistaxis [Unknown]

NARRATIVE: CASE EVENT DATE: 201107
